FAERS Safety Report 4269797-8 (Version None)
Quarter: 2004Q1

REPORT INFORMATION
  Report Type: 
  Country: None (occurrence: None)
  Receive Date: 20040113
  Receipt Date: 20021216
  Transmission Date: 20041129
  Serious: No
  Sender: FDA-Public Use
  Company Number: 6986

PATIENT
  Age: 24 Year
  Sex: Male

DRUGS (3)
  1. AMIKACIN [Suspect]
     Dosage: 500 MG IV
     Route: 042
     Dates: start: 20021125, end: 20021126
  2. TAZOCIN [Concomitant]
  3. MEROPENEM [Concomitant]

REACTIONS (2)
  - ANAPHYLACTOID REACTION [None]
  - NEUTROPENIA [None]
